FAERS Safety Report 6984030 (Version 4)
Quarter: 2015Q3

REPORT INFORMATION
  Report Type: Spontaneous
  Country: PT (occurrence: PT)
  Receive Date: 20090501
  Receipt Date: 20150713
  Transmission Date: 20151125
  Serious: Yes (Hospitalization)
  Sender: FDA-Public Use
  Company Number: PT-BIOGENIDEC-2009BI012571

PATIENT
  Age: 29 Year
  Sex: Male

DRUGS (6)
  1. DIPOTASSIUM CLORAEPATE [Concomitant]
     Dates: start: 2008, end: 20090419
  2. AMITRIPTYLINE [Concomitant]
     Active Substance: AMITRIPTYLINE
     Dates: start: 1999, end: 20090419
  3. CARBAMAZEPINE. [Concomitant]
     Active Substance: CARBAMAZEPINE
     Route: 048
     Dates: start: 200903, end: 20090419
  4. ALFUZOSIN [Concomitant]
     Active Substance: ALFUZOSIN
     Dates: start: 2008, end: 20090419
  5. TYSABRI [Suspect]
     Active Substance: NATALIZUMAB
     Indication: MULTIPLE SCLEROSIS
     Route: 042
     Dates: start: 20090311, end: 200904
  6. TROSPOIM CHLORIDE [Concomitant]
     Dates: start: 2008, end: 20090419

REACTIONS (12)
  - Blood lactate dehydrogenase increased [Recovered/Resolved]
  - Hypersensitivity [Recovered/Resolved]
  - Aspartate aminotransferase increased [Recovered/Resolved]
  - Transaminases [Unknown]
  - Alanine aminotransferase increased [Recovered/Resolved]
  - Gamma-glutamyltransferase increased [Recovered/Resolved]
  - Thrombocytopenia [Recovered/Resolved]
  - Leukocytosis [Unknown]
  - Eosinophilia [Recovered/Resolved]
  - Nausea [Recovered/Resolved]
  - Blood lactate dehydrogenase [Unknown]
  - Neutralising antibodies positive [Unknown]

NARRATIVE: CASE EVENT DATE: 20090419
